FAERS Safety Report 22639685 (Version 1)
Quarter: 2023Q2

REPORT INFORMATION
  Report Type: Spontaneous
  Country: RU (occurrence: RU)
  Receive Date: 20230626
  Receipt Date: 20230626
  Transmission Date: 20230722
  Serious: Yes (Hospitalization)
  Sender: FDA-Public Use
  Company Number: RU-STRIDES ARCOLAB LIMITED-2023SP009942

PATIENT
  Age: 69 Year
  Sex: Male
  Weight: 75 kg

DRUGS (4)
  1. VANCOMYCIN [Suspect]
     Active Substance: VANCOMYCIN
     Indication: Osteomyelitis chronic
     Dosage: 1 GRAM, TWICE DAILY
     Route: 065
  2. VANCOMYCIN [Suspect]
     Active Substance: VANCOMYCIN
     Indication: Staphylococcal infection
     Dosage: UNK, ON DAY 3
     Route: 065
  3. POLYMYXIN B [Concomitant]
     Active Substance: POLYMYXIN B
     Indication: Osteomyelitis chronic
     Dosage: 100 MILLIGRAM, TWICE A DAY
     Route: 065
  4. POLYMYXIN B [Concomitant]
     Active Substance: POLYMYXIN B
     Indication: Staphylococcal infection

REACTIONS (3)
  - Nephropathy [Recovered/Resolved]
  - Encephalopathy [Recovered/Resolved]
  - Off label use [Unknown]
